FAERS Safety Report 6119221-5 (Version None)
Quarter: 2009Q1

REPORT INFORMATION
  Report Type: 
  Country: None (occurrence: None)
  Receive Date: 20090316
  Receipt Date: 20090303
  Transmission Date: 20090719
  Serious: Yes (Other)
  Sender: FDA-Public Use
  Company Number: US-ROCHE-615028

PATIENT
  Sex: Female
  Weight: 45.4 kg

DRUGS (3)
  1. ACCUTANE [Suspect]
     Route: 048
     Dates: start: 20040101
  2. ACCUTANE [Suspect]
     Dosage: BATCH: RP0574337
     Route: 048
     Dates: start: 20090131
  3. YAZ [Concomitant]
     Indication: CONTRACEPTION
     Dates: start: 20090104

REACTIONS (6)
  - ARTHRALGIA [None]
  - BACK PAIN [None]
  - CONSTIPATION [None]
  - GASTROINTESTINAL PAIN [None]
  - HAEMATOCHEZIA [None]
  - MOOD SWINGS [None]
